FAERS Safety Report 5914668-1 (Version None)
Quarter: 2008Q4

REPORT INFORMATION
  Report Type: 
  Country: None (occurrence: None)
  Receive Date: 20081008
  Receipt Date: 20080925
  Transmission Date: 20090506
  Serious: Yes (Hospitalization)
  Sender: FDA-Public Use
  Company Number: 2008BI019870

PATIENT
  Age: 44 Year
  Sex: Female

DRUGS (5)
  1. TYSABRI [Suspect]
     Indication: MULTIPLE SCLEROSIS
     Dosage: 300 MG;QM;IV
     Route: 042
     Dates: start: 20071126
  2. ORAL CONTRACEPTIVES [Concomitant]
  3. AVONEX [Concomitant]
  4. BETASERON [Concomitant]
  5. AZATHIOPRINE [Concomitant]

REACTIONS (12)
  - ANAEMIA [None]
  - BACTERAEMIA [None]
  - BLOOD CULTURE POSITIVE [None]
  - CULTURE URINE POSITIVE [None]
  - ESCHERICHIA INFECTION [None]
  - GASTROENTERITIS VIRAL [None]
  - IRON BINDING CAPACITY TOTAL DECREASED [None]
  - NEPHROLITHIASIS [None]
  - PYELONEPHRITIS [None]
  - PYREXIA [None]
  - PYURIA [None]
  - URINARY TRACT INFECTION [None]
